FAERS Safety Report 7196885-9 (Version None)
Quarter: 2010Q4

REPORT INFORMATION
  Report Type: 
  Country: None (occurrence: None)
  Receive Date: 20101223
  Receipt Date: 20101220
  Transmission Date: 20110411
  Serious: Yes (Hospitalization)
  Sender: FDA-Public Use
  Company Number: CA-AMGEN-CANCT2010010024

PATIENT

DRUGS (1)
  1. PANITUMUMAB [Suspect]
     Indication: OROPHARYNGEAL CANCER STAGE UNSPECIFIED
     Dosage: 557 MG, Q3WK
     Route: 042
     Dates: start: 20100706

REACTIONS (1)
  - CONFUSIONAL STATE [None]
